FAERS Safety Report 14115935 (Version 3)
Quarter: 2017Q4

REPORT INFORMATION
  Report Type: Spontaneous
  Country: AU (occurrence: AU)
  Receive Date: 20171023
  Receipt Date: 20171121
  Transmission Date: 20180321
  Serious: Yes (Hospitalization)
  Sender: FDA-Public Use
  Company Number: AU-JNJFOC-20171014373

PATIENT
  Age: 38 Year
  Sex: Female
  Weight: 73 kg

DRUGS (7)
  1. LITHIUM. [Suspect]
     Active Substance: LITHIUM
     Indication: SCHIZOAFFECTIVE DISORDER
     Dosage: 450 MG IN THE MORNING AND 900 MG AT NIGHT.
     Route: 065
     Dates: start: 20171011
  2. RISPERDAL [Suspect]
     Active Substance: RISPERIDONE
     Indication: SCHIZOAFFECTIVE DISORDER
     Dosage: 2 MG PLUS 4 MG
     Route: 048
     Dates: start: 20171016, end: 20171018
  3. NITROFURANTOIN. [Concomitant]
     Active Substance: NITROFURANTOIN
     Indication: URINARY TRACT INFECTION
     Dosage: DOSE: 100 TWICE A DAY (UNITS UNSPECIFIED)
     Route: 048
     Dates: start: 20171011, end: 20171015
  4. RISPERDAL [Suspect]
     Active Substance: RISPERIDONE
     Indication: SCHIZOAFFECTIVE DISORDER
     Route: 048
     Dates: start: 20171011, end: 20171016
  5. INVEGA SUSTENNA [Suspect]
     Active Substance: PALIPERIDONE PALMITATE
     Indication: SCHIZOAFFECTIVE DISORDER
     Route: 065
     Dates: start: 20171018
  6. RISPERDAL [Suspect]
     Active Substance: RISPERIDONE
     Indication: SCHIZOAFFECTIVE DISORDER
     Route: 048
  7. FOLIC ACID. [Concomitant]
     Active Substance: FOLIC ACID
     Route: 048
     Dates: start: 20171014

REACTIONS (2)
  - Schizoaffective disorder [Unknown]
  - Exposure during pregnancy [Unknown]
